FAERS Safety Report 9106549 (Version 2)
Quarter: 2013Q2

REPORT INFORMATION
  Report Type: Report from Study
  Country: DE (occurrence: DE)
  Receive Date: 20130221
  Receipt Date: 20130410
  Transmission Date: 20140414
  Serious: Yes (Other)
  Sender: FDA-Public Use
  Company Number: DE-CELGENEUS-062-C5013-13021768

PATIENT
  Age: 69 Year
  Sex: Female
  Weight: 62 kg

DRUGS (6)
  1. CC-5013 [Suspect]
     Indication: CHRONIC LYMPHOCYTIC LEUKAEMIA
     Dosage: 15 MILLIGRAM
     Route: 048
     Dates: start: 20111017, end: 20111113
  2. CC-5013 [Suspect]
     Dosage: 10 MILLIGRAM
     Route: 048
     Dates: start: 20111201, end: 20111211
  3. CC-5013 [Suspect]
     Dosage: 5 MILLIGRAM
     Route: 048
     Dates: start: 20120305, end: 20120401
  4. CC-5013 [Suspect]
     Dosage: 2.5 MILLIGRAM
     Route: 048
     Dates: start: 20120423, end: 20120429
  5. CC-5013 [Suspect]
     Dosage: 1.25 MILLIGRAM
     Route: 048
     Dates: start: 20120518, end: 20120527
  6. CC-5013 [Suspect]
     Dosage: 1.25 MILLIGRAM
     Route: 048
     Dates: start: 20120702, end: 20120715

REACTIONS (1)
  - Basal cell carcinoma [Recovered/Resolved]
